FAERS Safety Report 7789845-8 (Version None)
Quarter: 2011Q3

REPORT INFORMATION
  Report Type: 
  Country: None (occurrence: None)
  Receive Date: 20110930
  Receipt Date: 20110301
  Transmission Date: 20111222
  Serious: No
  Sender: FDA-Public Use
  Company Number: US-ASTRAZENECA-2011SE11152

PATIENT
  Age: 56 Year
  Sex: Female
  Weight: 67.1 kg

DRUGS (4)
  1. ATENOLOL [Concomitant]
  2. ARIMIDEX [Suspect]
     Indication: BREAST CANCER
     Route: 048
     Dates: start: 20050101
  3. ARIMIDEX [Suspect]
     Route: 048
  4. XANAX [Concomitant]

REACTIONS (2)
  - WEIGHT INCREASED [None]
  - DRUG DOSE OMISSION [None]
